FAERS Safety Report 9439725 (Version 1)
Quarter: 2013Q3

REPORT INFORMATION
  Report Type: Spontaneous
  Country: US (occurrence: US)
  Receive Date: 20130805
  Receipt Date: 20130805
  Transmission Date: 20140515
  Serious: No
  Sender: FDA-Public Use
  Company Number: US-009507513-1308USA000623

PATIENT
  Sex: 0

DRUGS (1)
  1. ZIOPTAN [Suspect]
     Dosage: UNK, 1 DROP IN RIGHT EYE DAILY AT BEDTIME
     Route: 047
     Dates: start: 20130729

REACTIONS (2)
  - Incorrect product storage [Unknown]
  - No adverse event [Unknown]
